FAERS Safety Report 14636322 (Version 1)
Quarter: 2018Q1

REPORT INFORMATION
  Report Type: Report from Study
  Country: DE (occurrence: DE)
  Receive Date: 20180314
  Receipt Date: 20180314
  Transmission Date: 20180509
  Serious: Yes (Other)
  Sender: FDA-Public Use
  Company Number: DE-BIOGEN-2017BI00497062

PATIENT
  Age: 27 Year
  Sex: Female
  Weight: 52 kg

DRUGS (6)
  1. MELPERON [Concomitant]
     Active Substance: MELPERONE
     Indication: PRODUCT USED FOR UNKNOWN INDICATION
     Route: 065
  2. TRAZODON [Concomitant]
     Active Substance: TRAZODONE HYDROCHLORIDE
     Indication: PRODUCT USED FOR UNKNOWN INDICATION
     Dosage: AT NIGHT
     Route: 065
     Dates: start: 201704
  3. TYSABRI [Suspect]
     Active Substance: NATALIZUMAB
     Indication: MULTIPLE SCLEROSIS
     Route: 042
     Dates: start: 20140217
  4. TRAZODON [Concomitant]
     Active Substance: TRAZODONE HYDROCHLORIDE
     Dosage: AT NIGHT; DOSE INCREASED
     Route: 065
     Dates: start: 201706
  5. SATIVEX [Concomitant]
     Active Substance: NABIXIMOLS
     Indication: SLEEP DISORDER
     Dosage: 3 PUFFS AT NIGH; TO BE INCREASED AT APPROPRIATE
     Route: 065
     Dates: start: 20170717
  6. DOXYCYCLIN [Concomitant]
     Active Substance: DOXYCYCLINE
     Indication: ACNE
     Route: 065

REACTIONS (3)
  - Multiple sclerosis relapse [Recovered/Resolved with Sequelae]
  - Leukocytosis [Unknown]
  - Lymphocytosis [Unknown]

NARRATIVE: CASE EVENT DATE: 201705
